FAERS Safety Report 14239595 (Version 3)
Quarter: 2018Q1

REPORT INFORMATION
  Report Type: Spontaneous
  Country: US (occurrence: US)
  Receive Date: 20171130
  Receipt Date: 20180305
  Transmission Date: 20180508
  Serious: No
  Sender: FDA-Public Use
  Company Number: US-GLAXOSMITHKLINE-US2017182088

PATIENT
  Age: 91 Year
  Sex: Female

DRUGS (9)
  1. JANUVIA [Concomitant]
     Active Substance: SITAGLIPTIN PHOSPHATE
  2. WARFARIN [Concomitant]
     Active Substance: WARFARIN
  3. ANORO ELLIPTA [Suspect]
     Active Substance: UMECLIDINIUM BROMIDE\VILANTEROL TRIFENATATE
     Indication: DYSPNOEA
     Dosage: 1 PUFF(S), 1D
     Route: 055
     Dates: start: 20171125, end: 20171127
  4. GABAPENTIN. [Concomitant]
     Active Substance: GABAPENTIN
  5. FUROSEMIDE. [Concomitant]
     Active Substance: FUROSEMIDE
  6. VITAMIN D3 [Concomitant]
     Active Substance: CHOLECALCIFEROL
  7. CARDIA [Concomitant]
     Active Substance: AJMALINE
  8. ATORVASTATIN [Concomitant]
     Active Substance: ATORVASTATIN
  9. MELATONIN [Concomitant]
     Active Substance: MELATONIN

REACTIONS (3)
  - Throat irritation [Recovering/Resolving]
  - Product taste abnormal [Recovering/Resolving]
  - Product quality issue [Unknown]

NARRATIVE: CASE EVENT DATE: 20171125
